FAERS Safety Report 15066178 (Version 1)
Quarter: 2018Q2

REPORT INFORMATION
  Report Type: Spontaneous
  Country: FR (occurrence: FR)
  Receive Date: 20180626
  Receipt Date: 20180626
  Transmission Date: 20180711
  Serious: Yes (Other)
  Sender: FDA-Public Use
  Company Number: FR-MYLANLABS-2018M1043405

PATIENT
  Age: 33 Year
  Sex: Male

DRUGS (1)
  1. QUETIAPINE. [Suspect]
     Active Substance: QUETIAPINE
     Indication: PRODUCT USED FOR UNKNOWN INDICATION
     Dosage: UNK
     Route: 048

REACTIONS (4)
  - Visual impairment [Recovered/Resolved]
  - Amnesia [Recovered/Resolved]
  - Agitation [Recovered/Resolved]
  - Pyromania [Recovered/Resolved]
